FAERS Safety Report 7270119-9 (Version None)
Quarter: 2010Q4

REPORT INFORMATION
  Report Type: 
  Country: None (occurrence: None)
  Receive Date: 20101130
  Receipt Date: 20090909
  Transmission Date: 20110411
  Serious: Yes (Hospitalization)
  Sender: FDA-Public Use
  Company Number: 2009SP024439

PATIENT
  Age: 29 Year
  Sex: Female
  Weight: 90.7194 kg

DRUGS (3)
  1. NUVARING [Suspect]
     Indication: CONTRACEPTION
     Dosage: 1 DF; QM
     Dates: start: 20061017, end: 20070901
  2. NUVARING [Suspect]
     Indication: MENSTRUATION IRREGULAR
     Dosage: 1 DF; QM
     Dates: start: 20061017, end: 20070901
  3. ACETAMINOPHEN [Concomitant]

REACTIONS (5)
  - DEEP VEIN THROMBOSIS [None]
  - MENSTRUATION DELAYED [None]
  - NAUSEA [None]
  - PULMONARY EMBOLISM [None]
  - VULVAL ABSCESS [None]
